FAERS Safety Report 9489397 (Version 1)
Quarter: 2013Q3

REPORT INFORMATION
  Report Type: Spontaneous
  Country: PH (occurrence: PH)
  Receive Date: 20130829
  Receipt Date: 20130829
  Transmission Date: 20140515
  Serious: Yes (Other)
  Sender: FDA-Public Use
  Company Number: PHHY2013PH092146

PATIENT
  Age: 35 Year
  Sex: Male

DRUGS (4)
  1. DEXAMETHASONE [Suspect]
     Dosage: 8 MG, PER DAY
  2. ALLOPURINOL [Concomitant]
  3. COLCHICINE [Concomitant]
     Indication: GOUT
  4. PREDNISONE [Concomitant]

REACTIONS (10)
  - Hyperuricaemia [Unknown]
  - Cushing^s syndrome [Unknown]
  - Diabetes mellitus [Unknown]
  - Hypercholesterolaemia [Unknown]
  - Cushingoid [Unknown]
  - Skin striae [Unknown]
  - Lipohypertrophy [Unknown]
  - Central obesity [Unknown]
  - Acne [Unknown]
  - Lenticular opacities [Unknown]
